FAERS Safety Report 8190352-1 (Version None)
Quarter: 2012Q1

REPORT INFORMATION
  Report Type: 
  Country: None (occurrence: None)
  Receive Date: 20120307
  Receipt Date: 20120301
  Transmission Date: 20120608
  Serious: Yes (Hospitalization, Congenital Anomaly)
  Sender: FDA-Public Use
  Company Number: FR-PFIZER INC-033-1343-M0200012

PATIENT
  Age: 6 Month
  Sex: Female
  Weight: 3.1 kg

DRUGS (8)
  1. ZIDOVUDINE [Suspect]
     Route: 064
  2. ZIDOVUDINE [Suspect]
     Indication: HIV INFECTION
     Route: 042
  3. STAVUDINE [Suspect]
     Indication: HIV INFECTION
     Dosage: 30 MG, 2X/DAY
     Route: 048
  4. VIRACEPT [Suspect]
     Route: 064
  5. STAVUDINE [Suspect]
     Route: 064
  6. VIRACEPT [Suspect]
     Indication: HIV INFECTION
     Dosage: 1250 MG, 2X/DAY
     Route: 048
  7. VIDEX [Suspect]
     Indication: HIV INFECTION
     Dosage: 250 MG DAILY
     Route: 048
  8. VIDEX [Suspect]
     Route: 064

REACTIONS (11)
  - NEUROPATHY PERIPHERAL [None]
  - CONNECTIVE TISSUE DISORDER [None]
  - CONGENITAL CYSTIC KIDNEY DISEASE [None]
  - BLOOD LACTATE DEHYDROGENASE INCREASED [None]
  - LABORATORY TEST ABNORMAL [None]
  - LACTIC ACIDOSIS [None]
  - MATERNAL EXPOSURE TIMING UNSPECIFIED [None]
  - NEUTROPENIA [None]
  - ARTHROPATHY [None]
  - HYPERTRIGLYCERIDAEMIA [None]
  - BLOOD LACTIC ACID INCREASED [None]
